FAERS Safety Report 6273054-8 (Version None)
Quarter: 2009Q3

REPORT INFORMATION
  Report Type: 
  Country: None (occurrence: None)
  Receive Date: 20090715
  Receipt Date: 20090715
  Transmission Date: 20100115
  Serious: Yes (Other)
  Sender: FDA-Public Use
  Company Number: None

PATIENT
  Age: 70 Year
  Sex: Female
  Weight: 78.0187 kg

DRUGS (3)
  1. DILTIAZEM HYDROCHLORIDE ER 180MG MYLAN [Suspect]
     Indication: ANGINA PECTORIS
     Dosage: 180MG ONE PER DAY PO
     Route: 048
     Dates: start: 20090323, end: 20090714
  2. DILTIAZEM HYDROCHLORIDE ER 180MG MYLAN [Suspect]
     Indication: ARRHYTHMIA
     Dosage: 180MG ONE PER DAY PO
     Route: 048
     Dates: start: 20090323, end: 20090714
  3. DILTIAZEM HYDROCHLORIDE ER 180MG MYLAN [Suspect]
     Indication: HYPERTENSION
     Dosage: 180MG ONE PER DAY PO
     Route: 048
     Dates: start: 20090323, end: 20090714

REACTIONS (6)
  - ARRHYTHMIA [None]
  - HEART RATE INCREASED [None]
  - MEDICATION RESIDUE [None]
  - PRODUCT OUTER PACKAGING ISSUE [None]
  - PRODUCT SOLUBILITY ABNORMAL [None]
  - PRODUCT SUBSTITUTION ISSUE [None]
